FAERS Safety Report 11769070 (Version 2)
Quarter: 2016Q2

REPORT INFORMATION
  Report Type: Spontaneous
  Country: US (occurrence: US)
  Receive Date: 20151123
  Receipt Date: 20160512
  Transmission Date: 20160815
  Serious: No
  Sender: FDA-Public Use
  Company Number: US-MDT-ADR-2015-02210

PATIENT
  Age: 62 Year
  Sex: Female

DRUGS (3)
  1. MORPHINE [Suspect]
     Active Substance: MORPHINE
     Dosage: 2.75MG/DAY
     Route: 037
  2. MORPHINE [Suspect]
     Active Substance: MORPHINE
     Dosage: 2.5015MG/DAY
     Route: 037
  3. LIORESAL [Suspect]
     Active Substance: BACLOFEN
     Dosage: 90.05MCG/DAY
     Route: 037

REACTIONS (2)
  - No therapeutic response [Unknown]
  - Pain [Unknown]

NARRATIVE: CASE EVENT DATE: 20151111
